FAERS Safety Report 7212332-2 (Version None)
Quarter: 2010Q4

REPORT INFORMATION
  Report Type: 
  Country: None (occurrence: None)
  Receive Date: 20101229
  Receipt Date: 20101217
  Transmission Date: 20110411
  Serious: No
  Sender: FDA-Public Use
  Company Number: 023951

PATIENT
  Sex: Male
  Weight: 75.6 kg

DRUGS (1)
  1. LACOSAMIDE [Suspect]
     Dosage: (200 MG QD ORAL)
     Route: 048
     Dates: start: 20100727

REACTIONS (2)
  - PROCEDURAL COMPLICATION [None]
  - SYNCOPE [None]
